FAERS Safety Report 5582718-0 (Version None)
Quarter: 2008Q1

REPORT INFORMATION
  Report Type: 
  Country: None (occurrence: None)
  Receive Date: 20080107
  Receipt Date: 20080103
  Transmission Date: 20080703
  Serious: Yes (Other)
  Sender: FDA-Public Use
  Company Number: US-BOEHRINGER INGELHEIM PHARMACEUTICALS, INC.-2007-BP-23289BP

PATIENT
  Age: 55 Year
  Sex: Male

DRUGS (4)
  1. APTIVUS/RITONAVIR CAPSULES [Suspect]
     Route: 048
  2. VIREAD [Concomitant]
  3. EMTRICITABINE [Concomitant]
  4. ENFUVIRTIDE [Concomitant]

REACTIONS (2)
  - HAEMORRHAGE INTRACRANIAL [None]
  - MENINGITIS CRYPTOCOCCAL [None]
